FAERS Safety Report 9031202 (Version 2)
Quarter: 2013Q1

REPORT INFORMATION
  Report Type: Report from Study
  Country: JP (occurrence: JP)
  Receive Date: 20130115
  Receipt Date: 20130115
  Transmission Date: 20140127
  Serious: Yes (Death, Other)
  Sender: FDA-Public Use
  Company Number: JP-BAYER-2012-135237

PATIENT
  Age: 46 Year
  Sex: Male
  Weight: 75 kg

DRUGS (13)
  1. RIVAROXABAN [Suspect]
     Indication: CEREBROVASCULAR ACCIDENT PROPHYLAXIS
     Dosage: 10 MG, QD
     Route: 048
     Dates: start: 20121015, end: 20121117
  2. RIVAROXABAN [Interacting]
     Indication: ATRIAL FIBRILLATION
  3. BAYASPIRIN [Interacting]
     Dosage: DAILY DOSE 100 MG
     Route: 048
     Dates: end: 20121117
  4. ASPIRIN [Concomitant]
     Dosage: DAILY DOSE 100 MG
     Route: 048
     Dates: end: 20121117
  5. GLACTIV [Concomitant]
     Dosage: DAILY DOSE 100 MG
     Route: 048
     Dates: end: 20121117
  6. MAINTATE [Concomitant]
     Dosage: DAILY DOSE .625 MG
     Route: 048
     Dates: end: 20121117
  7. LASIX [Concomitant]
     Dosage: DAILY DOSE 20 MG
     Route: 048
     Dates: end: 20121117
  8. MAGLAX [Concomitant]
     Dosage: DAILY DOSE 500 MG
     Route: 048
     Dates: end: 20121117
  9. AVAPRO [Concomitant]
     Dosage: DAILY DOSE 100 MG
     Route: 048
     Dates: end: 20121117
  10. CRESTOR [Concomitant]
     Dosage: DAILY DOSE 5 MG
     Route: 048
     Dates: end: 20121117
  11. CALBLOCK [Concomitant]
     Dosage: DAILY DOSE 16 MG
     Route: 048
     Dates: end: 20121117
  12. LANTUS [Concomitant]
     Dosage: DAILY DOSE 46 IU
     Dates: end: 20121117
  13. NOVORAPID [Concomitant]
     Dosage: DAILY DOSE 38 IU
     Dates: end: 20121117

REACTIONS (3)
  - Subarachnoid haemorrhage [Fatal]
  - Haemorrhagic stroke [Fatal]
  - Drug interaction [None]
